FAERS Safety Report 18523335 (Version 2)
Quarter: 2021Q1

REPORT INFORMATION
  Report Type: Spontaneous
  Country: US (occurrence: US)
  Receive Date: 20201119
  Receipt Date: 20210317
  Transmission Date: 20210419
  Serious: Yes (Other)
  Sender: FDA-Public Use
  Company Number: US-PFIZER INC-2020453522

PATIENT
  Age: 81 Year
  Sex: Male
  Weight: 101.6 kg

DRUGS (1)
  1. LYRICA [Suspect]
     Active Substance: PREGABALIN
     Indication: NEUROPATHY PERIPHERAL
     Dosage: 100 MG, 2X/DAY (1 IN THE MORNING AND 1 AT NIGHT)
     Dates: start: 2017

REACTIONS (3)
  - Therapeutic product effect incomplete [Unknown]
  - Body height decreased [Unknown]
  - Drug dependence [Unknown]
